FAERS Safety Report 7645022-2 (Version None)
Quarter: 2011Q3

REPORT INFORMATION
  Report Type: 
  Country: None (occurrence: None)
  Receive Date: 20110729
  Receipt Date: 20110720
  Transmission Date: 20111222
  Serious: Yes (Hospitalization)
  Sender: FDA-Public Use
  Company Number: FR-GLAXOSMITHKLINE-B0721721A

PATIENT
  Sex: Male
  Weight: 75 kg

DRUGS (11)
  1. LORAZEPAM [Concomitant]
     Indication: ANXIETY
     Dosage: 1MG UNKNOWN
     Route: 048
     Dates: start: 19820101
  2. ASPIRIN [Concomitant]
     Indication: CORONARY ARTERY BYPASS
     Dosage: 75MG PER DAY
     Route: 048
     Dates: start: 20060101
  3. ACETAMINOPHEN [Concomitant]
  4. ALLOPURINOL [Concomitant]
     Indication: HYPERURICAEMIA
     Dosage: 300MG PER DAY
     Route: 048
  5. FORLAX [Concomitant]
  6. IMOVANE [Concomitant]
     Indication: INSOMNIA
     Dosage: 7.5MG PER DAY
     Route: 048
     Dates: start: 19820101
  7. BISOPROLOL FUMARATE [Concomitant]
     Indication: CORONARY ARTERY BYPASS
     Dosage: 5MG PER DAY
     Dates: start: 20060101
  8. VALACYCLOVIR HYDROCHLORIDE [Suspect]
     Indication: ANTIVIRAL PROPHYLAXIS
     Dosage: 500MG PER DAY
     Route: 048
     Dates: start: 20100708, end: 20110524
  9. PRAVASTATIN [Concomitant]
     Indication: CORONARY ARTERY BYPASS
     Dosage: 40MG UNKNOWN
     Route: 048
     Dates: start: 20060101
  10. COSOPT [Concomitant]
     Indication: GLAUCOMA
     Route: 047
  11. NEXIUM [Concomitant]
     Dosage: 20MG PER DAY

REACTIONS (3)
  - DELIRIUM [None]
  - HALLUCINATION, VISUAL [None]
  - PSYCHOTIC DISORDER [None]
